FAERS Safety Report 15213608 (Version 2)
Quarter: 2018Q4

REPORT INFORMATION
  Report Type: Spontaneous
  Country: PL (occurrence: PL)
  Receive Date: 20180730
  Receipt Date: 20181001
  Transmission Date: 20190204
  Serious: Yes (Other)
  Sender: FDA-Public Use
  Company Number: PL-ROCHE-2157823

PATIENT
  Age: 70 Year
  Sex: Female
  Weight: 76 kg

DRUGS (4)
  1. DOCETAXEL. [Concomitant]
     Active Substance: DOCETAXEL
     Indication: BREAST CANCER METASTATIC
     Dosage: FIRST DOSE
     Route: 065
  2. DOCETAXEL. [Concomitant]
     Active Substance: DOCETAXEL
     Dosage: SECOND DOSE
     Route: 065
  3. HERCEPTIN [Concomitant]
     Active Substance: TRASTUZUMAB
     Indication: BREAST CANCER METASTATIC
     Route: 042
  4. PERJETA [Suspect]
     Active Substance: PERTUZUMAB
     Indication: BREAST CANCER METASTATIC
     Route: 042
     Dates: start: 20180606, end: 20180717

REACTIONS (11)
  - Angioedema [Unknown]
  - Dyspnoea [Unknown]
  - Pulmonary pain [Unknown]
  - Cyanosis [Unknown]
  - Peripheral swelling [Unknown]
  - Soft tissue swelling [Recovered/Resolved]
  - Pharyngeal disorder [Unknown]
  - Skin oedema [Unknown]
  - Swelling of eyelid [Unknown]
  - Hot flush [Unknown]
  - Swelling [Unknown]

NARRATIVE: CASE EVENT DATE: 20180717
